FAERS Safety Report 16209521 (Version 6)
Quarter: 2019Q3

REPORT INFORMATION
  Report Type: Spontaneous
  Country: TW (occurrence: TW)
  Receive Date: 20190417
  Receipt Date: 20190814
  Transmission Date: 20191004
  Serious: Yes (Other)
  Sender: FDA-Public Use
  Company Number: TW-PFIZER INC-2018476941

PATIENT
  Age: 68 Year
  Sex: Male

DRUGS (3)
  1. SUTENT [Suspect]
     Active Substance: SUNITINIB MALATE
     Dosage: 37.5 MG, CYCLIC (TWO WEEKS ON, ONE WEEK OFF)
     Route: 048
     Dates: start: 20190423, end: 20190505
  2. SUTENT [Suspect]
     Active Substance: SUNITINIB MALATE
     Indication: RENAL CELL CARCINOMA
     Dosage: 50 MG, CYCLIC (TWO WEEKS ON, ONE WEEK OFF)
     Route: 048
     Dates: start: 20180201, end: 201812
  3. SUTENT [Suspect]
     Active Substance: SUNITINIB MALATE
     Dosage: 37.5 MG, CYCLIC (TWO WEEKS ON, ONE WEEK OFF)
     Route: 048
     Dates: start: 20181220

REACTIONS (13)
  - Vomiting [Recovered/Resolved]
  - Condition aggravated [Recovered/Resolved]
  - Fatigue [Recovering/Resolving]
  - Palmar-plantar erythrodysaesthesia syndrome [Recovered/Resolved]
  - Feeding disorder [Recovered/Resolved]
  - Blood pressure increased [Recovered/Resolved]
  - Intestinal angina [Recovering/Resolving]
  - Decreased appetite [Recovering/Resolving]
  - Diarrhoea [Recovering/Resolving]
  - Abdominal pain [Recovering/Resolving]
  - Hypogeusia [Recovering/Resolving]
  - Tongue ulceration [Unknown]
  - Glossodynia [Not Recovered/Not Resolved]

NARRATIVE: CASE EVENT DATE: 2018
